FAERS Safety Report 4311410-5 (Version None)
Quarter: 2004Q1

REPORT INFORMATION
  Report Type: 
  Country: None (occurrence: None)
  Receive Date: 20040302
  Receipt Date: 20040220
  Transmission Date: 20041129
  Serious: Yes (Other)
  Sender: FDA-Public Use
  Company Number: US-JNJFOC-20040204908

PATIENT
  Age: 69 Year
  Sex: Male

DRUGS (8)
  1. INFLIXIMAB (INFLIXIMAB, RECOMBINANT) LYOPHILIZED POWDER [Suspect]
     Indication: RHEUMATOID ARTHRITIS
     Dosage: INTRAVENOUS
     Route: 042
     Dates: start: 20010201, end: 20020601
  2. ULTRACET [Concomitant]
  3. INHALERS (ANTI-ASTHMATICS) [Concomitant]
  4. CALCIUM (CALCIUM) [Concomitant]
  5. METHOTREXATE [Concomitant]
  6. FOLIC ACID [Concomitant]
  7. LOVOSTATIN (LOVASTATIN) [Concomitant]
  8. MULTIVITAMIN [Concomitant]

REACTIONS (2)
  - HYPERCALCAEMIA [None]
  - LUNG NEOPLASM MALIGNANT [None]
